FAERS Safety Report 5693326-5 (Version None)
Quarter: 2008Q2

REPORT INFORMATION
  Report Type: 
  Country: None (occurrence: None)
  Receive Date: 20080403
  Receipt Date: 20071127
  Transmission Date: 20081010
  Serious: No
  Sender: FDA-Public Use
  Company Number: US-BAYER-200715869NA

PATIENT
  Age: 32 Year
  Sex: Female
  Weight: 95 kg

DRUGS (2)
  1. MIRENA [Suspect]
     Indication: CONTRACEPTION
     Route: 015
     Dates: start: 20040609
  2. IBUPROFEN [Concomitant]

REACTIONS (4)
  - ABDOMINAL PAIN [None]
  - AMENORRHOEA [None]
  - HEADACHE [None]
  - METRORRHAGIA [None]
